FAERS Safety Report 24904601 (Version 1)
Quarter: 2025Q1

REPORT INFORMATION
  Report Type: Spontaneous
  Country: US (occurrence: US)
  Receive Date: 20250130
  Receipt Date: 20250130
  Transmission Date: 20250409
  Serious: No
  Sender: Tarsus Pharmaceuticals
  Company Number: US-TARSUS PHARMACEUTICALS-TSP-US-2024-000544

PATIENT
  Sex: Female

DRUGS (2)
  1. XDEMVY [Suspect]
     Active Substance: LOTILANER
     Indication: Madarosis
     Route: 065
  2. XDEMVY [Suspect]
     Active Substance: LOTILANER
     Indication: Demodex blepharitis

REACTIONS (1)
  - Therapeutic response decreased [Unknown]
